FAERS Safety Report 5175831-3 (Version None)
Quarter: 2006Q4

REPORT INFORMATION
  Report Type: 
  Country: None (occurrence: None)
  Receive Date: 20061215
  Receipt Date: 20060710
  Transmission Date: 20070319
  Serious: No
  Sender: FDA-Public Use
  Company Number: US-AMGEN-KDL185722

PATIENT
  Sex: Female

DRUGS (3)
  1. ENBREL [Suspect]
     Indication: RHEUMATOID ARTHRITIS
     Route: 058
     Dates: start: 20060520
  2. SULFASALAZINE [Concomitant]
     Dates: start: 20050101
  3. PLAQUENIL [Concomitant]
     Dates: start: 20050101

REACTIONS (4)
  - CHILLS [None]
  - NAUSEA [None]
  - ORAL DISCOMFORT [None]
  - SINUS HEADACHE [None]
